FAERS Safety Report 18029489 (Version 5)
Quarter: 2020Q3

REPORT INFORMATION
  Report Type: Spontaneous
  Country: JP (occurrence: JP)
  Receive Date: 20200715
  Receipt Date: 20200825
  Transmission Date: 20201103
  Serious: Yes (Hospitalization, Other)
  Sender: FDA-Public Use
  Company Number: JP-NOVOPROD-739868

PATIENT
  Age: 58 Year
  Sex: Male

DRUGS (3)
  1. NORDITROPIN [Suspect]
     Active Substance: SOMATROPIN
     Indication: GROWTH HORMONE DEFICIENCY
     Dosage: 0.2 MG, QD
     Route: 058
     Dates: start: 20100212
  2. NORDITROPIN [Suspect]
     Active Substance: SOMATROPIN
     Dosage: 0.15 MG, QD (RESUMED)
     Route: 058
     Dates: start: 20160617
  3. NORDITROPIN [Suspect]
     Active Substance: SOMATROPIN
     Dosage: 0.15 MG, QD (DOSE REDUCED)
     Route: 058
     Dates: start: 201005, end: 20150326

REACTIONS (1)
  - Papillary thyroid cancer [Recovered/Resolved]

NARRATIVE: CASE EVENT DATE: 201502
